FAERS Safety Report 6678253-9 (Version None)
Quarter: 2010Q2

REPORT INFORMATION
  Report Type: 
  Country: None (occurrence: None)
  Receive Date: 20100408
  Receipt Date: 20100408
  Transmission Date: 20101027
  Serious: No
  Sender: FDA-Public Use
  Company Number: None

PATIENT
  Age: 53 Year
  Sex: Female
  Weight: 58.9676 kg

DRUGS (2)
  1. LEVAQUIN [Suspect]
     Indication: BRONCHITIS
     Dosage: 1 TAB PER DAY
     Dates: start: 20080501, end: 20080510
  2. LEVAQUIN [Suspect]
     Indication: PNEUMONIA
     Dosage: 1 TAB PER DAY
     Dates: start: 20080501, end: 20080510

REACTIONS (6)
  - AGEUSIA [None]
  - ANOSMIA [None]
  - ARTHROPATHY [None]
  - ECONOMIC PROBLEM [None]
  - THERAPEUTIC RESPONSE UNEXPECTED [None]
  - WEIGHT DECREASED [None]
